FAERS Safety Report 7365479-4 (Version None)
Quarter: 2011Q1

REPORT INFORMATION
  Report Type: 
  Country: None (occurrence: None)
  Receive Date: 20110322
  Receipt Date: 20101018
  Transmission Date: 20110831
  Serious: Yes (Hospitalization)
  Sender: FDA-Public Use
  Company Number: US-BAYER-201028649NA

PATIENT
  Sex: Female
  Weight: 63.492 kg

DRUGS (24)
  1. TOPIRAMATE [Concomitant]
  2. POTASSIUM CHLORIDE [Concomitant]
  3. ALLERGY MEDICATION [Concomitant]
  4. UNKNOWN DRUG [Concomitant]
  5. UNKNOWN DRUG [Concomitant]
  6. YAZ [Suspect]
     Indication: PREMENSTRUAL SYNDROME
  7. VENTOLIN HFA [Concomitant]
  8. PROPRANOLOL [Concomitant]
  9. NEXIUM [Concomitant]
  10. AZITHROMYCIN [Concomitant]
  11. TRAMADOL HCL [Concomitant]
  12. ALBUTEROL [Concomitant]
  13. ADDERALL 10 [Concomitant]
  14. UNKNOWN DRUG [Concomitant]
  15. FENTANYL CITRATE [Concomitant]
  16. FROVA [Concomitant]
  17. TREZIX NOS [Concomitant]
  18. BUTORPHANOL [Concomitant]
  19. ALLERGY MEDICATION [Concomitant]
  20. MAXALT-MLT [Concomitant]
  21. UNKNOWN DRUG [Concomitant]
  22. YAZ [Suspect]
     Indication: MENSTRUAL CYCLE MANAGEMENT
     Route: 048
     Dates: start: 20080501, end: 20100415
  23. CEPHALEXIN [Concomitant]
  24. GLYCOPYRROLATE [Concomitant]

REACTIONS (5)
  - CHOLELITHIASIS [None]
  - ABDOMINAL PAIN UPPER [None]
  - VOMITING [None]
  - GALLBLADDER INJURY [None]
  - NAUSEA [None]
